FAERS Safety Report 4557718-X (Version None)
Quarter: 2005Q1

REPORT INFORMATION
  Report Type: 
  Country: None (occurrence: None)
  Receive Date: 20050118
  Receipt Date: 20050105
  Transmission Date: 20050727
  Serious: Yes (Other)
  Sender: FDA-Public Use
  Company Number: 2004-DE-06308DE

PATIENT
  Sex: Male

DRUGS (16)
  1. SIFROL (PRAMIPEXOLE DIHYDROCHLORIDE) (TA) (PRAMIPEXOLE) [Suspect]
     Indication: RESTLESS LEGS SYNDROME
     Dosage: 0-0-1/2-1/2 (0.18 MG), PO
     Route: 048
  2. ZURCAL (PANTOPRAZOLE SODIUM) (TAF) [Concomitant]
  3. BELOC (METOPROLOL TARTRATE) [Concomitant]
  4. NORVASC [Concomitant]
  5. RAMIPRIL [Concomitant]
  6. NORMOXIN (MOXONIDINE) [Concomitant]
  7. FERRLECIT [Concomitant]
  8. MEL-C (SODIUM ASCORBATE) [Concomitant]
  9. NEORECORMON [Concomitant]
  10. CALCIUMACETAT-NEFRO [Concomitant]
  11. CPS GRY [Concomitant]
  12. DREISAVIT (DREISAVIT) [Concomitant]
  13. PARACODIN (DIHYDROCODEINE BITARTRATE) [Concomitant]
  14. SUPRESSIN (DOXAZOSIN MESILATE) [Concomitant]
  15. THROMBO ASS (ACETYLSALICYLIC ACID [Concomitant]
  16. ZOLDEM [Concomitant]

REACTIONS (1)
  - BONE MARROW DEPRESSION [None]
